FAERS Safety Report 23846691 (Version 3)
Quarter: 2024Q2

REPORT INFORMATION
  Report Type: Report from Study
  Country: CA (occurrence: CA)
  Receive Date: 20240513
  Receipt Date: 20240604
  Transmission Date: 20240715
  Serious: Yes (Other)
  Sender: FDA-Public Use
  Company Number: CA-TAKEDA-2024TUS025336

PATIENT
  Age: 63 Year
  Sex: Female

DRUGS (5)
  1. VEDOLIZUMAB [Suspect]
     Active Substance: VEDOLIZUMAB
     Indication: Colitis ulcerative
     Dosage: 300 MILLIGRAM
     Route: 042
     Dates: start: 20231208
  2. VEDOLIZUMAB [Suspect]
     Active Substance: VEDOLIZUMAB
     Dosage: 300 MILLIGRAM
     Route: 042
  3. VEDOLIZUMAB [Suspect]
     Active Substance: VEDOLIZUMAB
     Dosage: 300 MILLIGRAM, Q4WEEKS
     Route: 042
     Dates: start: 20240510
  4. PREDNISONE [Concomitant]
     Active Substance: PREDNISONE
     Dosage: UNK
     Dates: start: 20231116
  5. MESALAMINE [Concomitant]
     Active Substance: MESALAMINE
     Dosage: 4.8 GRAM, QD
     Dates: start: 202310

REACTIONS (10)
  - Colitis ulcerative [Not Recovered/Not Resolved]
  - Defaecation urgency [Unknown]
  - Abnormal faeces [Unknown]
  - Frequent bowel movements [Unknown]
  - Nightmare [Not Recovered/Not Resolved]
  - Sleep terror [Not Recovered/Not Resolved]
  - Off label use [Unknown]
  - Abnormal dreams [Unknown]
  - Sinus congestion [Unknown]
  - Headache [Unknown]

NARRATIVE: CASE EVENT DATE: 20240510
